FAERS Safety Report 9255284 (Version 1)
Quarter: 2013Q2

REPORT INFORMATION
  Report Type: Spontaneous
  Country: JP (occurrence: JP)
  Receive Date: 20130425
  Receipt Date: 20130425
  Transmission Date: 20140414
  Serious: Yes (Other)
  Sender: FDA-Public Use
  Company Number: JP-MERCK-1304JPN011936

PATIENT
  Age: 60 Year
  Sex: Female

DRUGS (5)
  1. REFLEX [Suspect]
     Dosage: UNK
     Route: 048
  2. AKINETON TABLETS [Concomitant]
     Dosage: UNK
  3. SEROQUEL [Concomitant]
     Dosage: UNK
     Route: 048
  4. GABAPEN [Concomitant]
     Dosage: UNK
     Route: 048
  5. SERENACE [Suspect]
     Dosage: UNK

REACTIONS (1)
  - Neuroleptic malignant syndrome [Unknown]
